FAERS Safety Report 21773417 (Version 1)
Quarter: 2022Q4

REPORT INFORMATION
  Report Type: Spontaneous
  Country: IN (occurrence: IN)
  Receive Date: 20221223
  Receipt Date: 20221223
  Transmission Date: 20230112
  Serious: Yes (Hospitalization)
  Sender: FDA-Public Use
  Company Number: IN-PFIZER INC-PV202200097404

PATIENT
  Age: 77 Year
  Sex: Female

DRUGS (4)
  1. PALBOCICLIB [Suspect]
     Active Substance: PALBOCICLIB
     Dosage: 100 MG, 1X/DAY (DAY1 - DAY 21 THEN 7 DAYS GAP THEN DO CBC EVERY 15 DAYS (SUCH 6 CYCLES)
     Route: 048
  2. LETROZOLE [Concomitant]
     Active Substance: LETROZOLE
     Dosage: 2.5 MG, TABLET DAILY ONE FOR 1 YEAR
  3. CALCIUM CARBONATE [Concomitant]
     Active Substance: CALCIUM CARBONATE
     Dosage: 500 MG, DAILY ONE FOR 1YEAR
  4. OSTEOFOS [Concomitant]
     Dosage: 35 MG (ONCE EVERY 15 DAYS (BREAKFAST TIME IN SITTING POSITION FOR 1 HOUR) FOR 1 YEAR.)

REACTIONS (2)
  - Fall [Unknown]
  - Effusion [Unknown]
